FAERS Safety Report 12562794 (Version 1)
Quarter: 2016Q3

REPORT INFORMATION
  Report Type: Spontaneous
  Country: IE (occurrence: IE)
  Receive Date: 20160715
  Receipt Date: 20160715
  Transmission Date: 20161109
  Serious: Yes (Other)
  Sender: FDA-Public Use
  Company Number: IE-ASTRAZENECA-2016SE74799

PATIENT
  Age: 38 Year
  Sex: Female

DRUGS (3)
  1. ZOLADEX [Suspect]
     Active Substance: GOSERELIN ACETATE
     Indication: BREAST CANCER METASTATIC
     Route: 058
     Dates: start: 201406
  2. TAMOXIFEN [Concomitant]
     Active Substance: TAMOXIFEN
     Indication: BREAST CANCER METASTATIC
     Dates: start: 201209
  3. 1,6-HEXANEDIOL DIACRYLATE [Suspect]
     Active Substance: 1,6-HEXANEDIOL DIACRYLATE

REACTIONS (1)
  - Dermatitis exfoliative [Not Recovered/Not Resolved]
